FAERS Safety Report 5217070-3 (Version None)
Quarter: 2007Q1

REPORT INFORMATION
  Report Type: 
  Country: None (occurrence: None)
  Receive Date: 20070124
  Receipt Date: 20070115
  Transmission Date: 20070707
  Serious: Yes (Other)
  Sender: FDA-Public Use
  Company Number: FR-ELI_LILLY_AND_COMPANY-FR200701003045

PATIENT
  Age: 84 Year
  Sex: Female

DRUGS (4)
  1. FORTEO [Suspect]
     Indication: OSTEOPOROSIS
     Dosage: 20 UG, DAILY (1/D)
     Route: 058
     Dates: start: 20060818
  2. MORPHINE [Concomitant]
     Indication: PAIN
     Dosage: 20 MG, 2/D
  3. ALENDRONATE SODIUM [Concomitant]
     Indication: OSTEOPOROSIS
     Dosage: UNK, WEEKLY (1/W)
     Route: 048
  4. COLECALCIFEROL [Concomitant]
     Indication: OSTEOPOROSIS
     Dosage: UNK, WEEKLY (1/W)
     Route: 048

REACTIONS (7)
  - ABDOMINAL PAIN LOWER [None]
  - ASTHENIA [None]
  - DECREASED APPETITE [None]
  - DIZZINESS [None]
  - LOSS OF CONSCIOUSNESS [None]
  - MALAISE [None]
  - NAUSEA [None]
